FAERS Safety Report 11772403 (Version 2)
Quarter: 2016Q1

REPORT INFORMATION
  Report Type: Spontaneous
  Country: BR (occurrence: BR)
  Receive Date: 20151124
  Receipt Date: 20160121
  Transmission Date: 20160525
  Serious: Yes (Other)
  Sender: FDA-Public Use
  Company Number: BR-PFIZER INC-2015393095

PATIENT
  Age: 34 Year
  Sex: Male
  Weight: 84 kg

DRUGS (4)
  1. GANFORT [Concomitant]
     Active Substance: BIMATOPROST\TIMOLOL
     Indication: INTRAOCULAR PRESSURE INCREASED
     Dosage: UNK
     Dates: start: 201509, end: 201510
  2. OCUPRESS /00583802/ [Concomitant]
     Indication: INTRAOCULAR PRESSURE INCREASED
     Dosage: UNK
     Dates: start: 201509
  3. XALATAN [Suspect]
     Active Substance: LATANOPROST
     Indication: GLAUCOMA
     Dosage: ONE DROP IN EACH EYE (3UG), 1X/DAY (IN THE EVENING)
     Route: 047
     Dates: start: 2004
  4. COMBIGAN [Concomitant]
     Active Substance: BRIMONIDINE TARTRATE\TIMOLOL MALEATE
     Indication: INTRAOCULAR PRESSURE INCREASED
     Dosage: UNK
     Dates: start: 201509

REACTIONS (3)
  - Visual acuity reduced [Not Recovered/Not Resolved]
  - Product use issue [Not Recovered/Not Resolved]
  - Glaucomatous optic disc atrophy [Not Recovered/Not Resolved]

NARRATIVE: CASE EVENT DATE: 2004
